FAERS Safety Report 22368845 (Version 2)
Quarter: 2023Q2

REPORT INFORMATION
  Report Type: Report from Study
  Country: PL (occurrence: None)
  Receive Date: 20230525
  Receipt Date: 20230619
  Transmission Date: 20230722
  Serious: Yes (Hospitalization)
  Sender: FDA-Public Use
  Company Number: PL-ROCHE-3351347

PATIENT
  Age: 49 Year
  Sex: Female
  Weight: 53.1 kg

DRUGS (13)
  1. OCRELIZUMAB [Suspect]
     Active Substance: OCRELIZUMAB
     Indication: Relapsing-remitting multiple sclerosis
     Dosage: START DATE OF MOST RECENT DOSE OF STUDY DRUG PRIOR TO SAE 21/FEB/2023
     Route: 042
     Dates: start: 20210422
  2. EUTHYROX [Concomitant]
     Active Substance: LEVOTHYROXINE SODIUM
     Indication: Hypothyroidism
     Route: 048
     Dates: start: 201204
  3. DITROPAN [Concomitant]
     Active Substance: OXYBUTYNIN CHLORIDE
     Indication: Micturition urgency
     Route: 048
     Dates: start: 20200928
  4. VITAMIN D3 [Concomitant]
     Active Substance: CHOLECALCIFEROL
     Indication: Vitamin D deficiency
     Route: 048
     Dates: start: 20200928
  5. KETONAL FAST [Concomitant]
     Indication: Migraine
     Route: 048
     Dates: start: 20210204
  6. KETONAL FAST [Concomitant]
     Indication: Pain in extremity
     Route: 048
     Dates: start: 20210423
  7. TOPAMAX [Concomitant]
     Active Substance: TOPIRAMATE
     Indication: Migraine
     Route: 048
     Dates: start: 20220615
  8. AMANTIX [Concomitant]
     Indication: Fatigue
     Route: 048
     Dates: start: 20220615
  9. POLVERTIC [Concomitant]
     Indication: Dizziness
     Route: 048
     Dates: start: 20220615
  10. SOLU-MEDROL [Concomitant]
     Active Substance: METHYLPREDNISOLONE SODIUM SUCCINATE
     Route: 042
     Dates: start: 20230221, end: 20230221
  11. DULOXETINE HYDROCHLORIDE [Concomitant]
     Active Substance: DULOXETINE HYDROCHLORIDE
     Indication: Pain in extremity
     Route: 048
     Dates: start: 20230222
  12. KCL [Concomitant]
     Active Substance: POTASSIUM CHLORIDE
     Indication: Hypokalaemia
     Route: 065
     Dates: start: 20230222, end: 20230225
  13. ACETAMINOPHEN [Concomitant]
     Active Substance: ACETAMINOPHEN
     Route: 048
     Dates: start: 20230221, end: 20230221

REACTIONS (1)
  - Infusion related reaction [Recovered/Resolved]

NARRATIVE: CASE EVENT DATE: 20230222
